FAERS Safety Report 15387137 (Version 2)
Quarter: 2018Q3

REPORT INFORMATION
  Report Type: Spontaneous
  Country: US (occurrence: US)
  Receive Date: 20180914
  Receipt Date: 20180928
  Transmission Date: 20181010
  Serious: Yes (Death, Hospitalization)
  Sender: FDA-Public Use
  Company Number: US-PFIZER INC-2018367754

PATIENT
  Age: 28 Year
  Sex: Male

DRUGS (19)
  1. KETAMINE HCL [Suspect]
     Active Substance: KETAMINE HYDROCHLORIDE
     Dosage: UNK(4 MG/KG/HOUR, INFUSIONS)
  2. KETAMINE HCL [Suspect]
     Active Substance: KETAMINE HYDROCHLORIDE
     Dosage: UNK, (MAXIMUM DOSE KETAMINE 7 MG/KG/HOUR0
  3. MIDAZOLAM [Suspect]
     Active Substance: MIDAZOLAM HYDROCHLORIDE
     Indication: SEIZURE
     Dosage: UNK(2.9 MG/KG/HOUR)
  4. LEVETIRACETAM. [Concomitant]
     Active Substance: LEVETIRACETAM
     Indication: SEIZURE
     Dosage: UNK
  5. TOPIRAMATE. [Concomitant]
     Active Substance: TOPIRAMATE
     Indication: SEIZURE
     Dosage: UNK
  6. CLONAZEPAM. [Concomitant]
     Active Substance: CLONAZEPAM
     Indication: SEIZURE
     Dosage: UNK
  7. FELBAMATE. [Concomitant]
     Active Substance: FELBAMATE
     Indication: SEIZURE
     Dosage: UNK
  8. PROPOFOL. [Concomitant]
     Active Substance: PROPOFOL
     Indication: SEIZURE
     Dosage: UNK, (ESCALATING DOSES OF PROPOFOL)
  9. KETAMINE HCL [Suspect]
     Active Substance: KETAMINE HYDROCHLORIDE
     Indication: SEIZURE
     Dosage: UNK (5 MG/KG/HOUR, INFUSIONS)
  10. LORAZEPAM. [Concomitant]
     Active Substance: LORAZEPAM
     Indication: SEIZURE
     Dosage: UNK
  11. ESLICARBAZEPINE [Concomitant]
     Active Substance: ESLICARBAZEPINE
     Indication: SEIZURE
     Dosage: UNK
  12. TIAGABINE [Concomitant]
     Active Substance: TIAGABINE
     Indication: SEIZURE
     Dosage: UNK
  13. PHENYTOIN. [Concomitant]
     Active Substance: PHENYTOIN
     Indication: SEIZURE
     Dosage: UNK
  14. CLOBAZAM [Concomitant]
     Active Substance: CLOBAZAM
     Indication: SEIZURE
     Dosage: UNK
  15. MIDAZOLAM [Suspect]
     Active Substance: MIDAZOLAM HYDROCHLORIDE
     Dosage: UNK (4 MG/KG/HOUR, INFUSIONS)
  16. MIDAZOLAM [Suspect]
     Active Substance: MIDAZOLAM HYDROCHLORIDE
     Dosage: UNK, (MIDAZOLAM 3.1 MG/KG/HOUR)
  17. VIGABATRIN. [Concomitant]
     Active Substance: VIGABATRIN
     Indication: SEIZURE
     Dosage: UNK
  18. FENTANYL. [Concomitant]
     Active Substance: FENTANYL
     Indication: SEIZURE
     Dosage: UNK
  19. PHENOBARBITAL [PHENOBARBITAL SODIUM] [Concomitant]
     Indication: SEIZURE
     Dosage: UNK

REACTIONS (7)
  - Metabolic acidosis [Fatal]
  - Cardiac arrest [Fatal]
  - Hyperchloraemia [Unknown]
  - Bundle branch block right [Unknown]
  - Hypotension [Unknown]
  - Blood lactic acid increased [Unknown]
  - Bradycardia [Unknown]
